FAERS Safety Report 9701789 (Version 1)
Quarter: 2013Q4

REPORT INFORMATION
  Report Type: Spontaneous
  Country: US (occurrence: None)
  Receive Date: 20131120
  Receipt Date: 20131120
  Transmission Date: 20140711
  Serious: No
  Sender: FDA-Public Use
  Company Number: None

PATIENT
  Age: 70 Year
  Sex: Female
  Weight: 49 kg

DRUGS (1)
  1. PACLITAXEL [Suspect]
     Dates: start: 20130924

REACTIONS (13)
  - Abdominal pain [None]
  - Nausea [None]
  - Vomiting [None]
  - Constipation [None]
  - Diarrhoea [None]
  - Internal hernia [None]
  - Small intestinal obstruction [None]
  - Abdominal adhesions [None]
  - Pyrexia [None]
  - Chills [None]
  - Klebsiella test positive [None]
  - Sepsis [None]
  - Respiratory tract infection [None]
